FAERS Safety Report 5126160-5 (Version None)
Quarter: 2006Q3

REPORT INFORMATION
  Report Type: 
  Country: None (occurrence: None)
  Receive Date: 20060823
  Receipt Date: 20050714
  Transmission Date: 20061208
  Serious: Yes (Other)
  Sender: FDA-Public Use
  Company Number: 2005102245

PATIENT
  Sex: Female

DRUGS (3)
  1. NORVASC [Suspect]
     Indication: HYPERTENSION
     Dosage: 2.5 MG (2.5 MG, DAILY INTERVAL: EVERY DAY), ORAL
     Route: 048
     Dates: start: 20041201, end: 20050501
  2. LIPITOR [Suspect]
     Indication: BLOOD CHOLESTEROL INCREASED
     Dosage: UNKOWN (DAILY INTERVAL, EVERY DAY), ORAL
     Route: 048
     Dates: start: 20020101, end: 20050501
  3. LISINOPRIL [Suspect]
     Indication: BLOOD PRESSURE INCREASED
     Dosage: 10 MG (10 MG, DAILY INTERVAL: EVERY DAY), ORAL
     Route: 048
     Dates: start: 20041001, end: 20050501

REACTIONS (1)
  - HEPATITIS CHOLESTATIC [None]
